FAERS Safety Report 4964923-7 (Version None)
Quarter: 2006Q1

REPORT INFORMATION
  Report Type: 
  Country: None (occurrence: None)
  Receive Date: 20060130
  Receipt Date: 20050831
  Transmission Date: 20060701
  Serious: Yes (Other)
  Sender: FDA-Public Use
  Company Number: 143011USA

PATIENT
  Age: 57 Year
  Sex: Female

DRUGS (3)
  1. COPAXONE [Suspect]
     Indication: MULTIPLE SCLEROSIS
  2. AVONEX [Suspect]
     Dates: start: 19960601
  3. AVONEX [Suspect]
     Dates: start: 20050618

REACTIONS (1)
  - COLON CANCER [None]
